FAERS Safety Report 16919425 (Version 1)
Quarter: 2019Q4

REPORT INFORMATION
  Report Type: Spontaneous
  Country: US (occurrence: US)
  Receive Date: 20191014
  Receipt Date: 20191014
  Transmission Date: 20200122
  Serious: Yes (Hospitalization)
  Sender: FDA-Public Use
  Company Number: None

PATIENT
  Age: 34 Year
  Sex: Female
  Weight: 47.25 kg

DRUGS (3)
  1. EMGALITY [Suspect]
     Active Substance: GALCANEZUMAB-GNLM
     Indication: MIGRAINE
  2. SUMATRIPTAN INJECTION [Concomitant]
     Active Substance: SUMATRIPTAN
  3. ADVIL [Concomitant]
     Active Substance: IBUPROFEN

REACTIONS (10)
  - Injection site mass [None]
  - Dizziness [None]
  - Injection site pruritus [None]
  - Cold sweat [None]
  - Presyncope [None]
  - Nausea [None]
  - Injection site rash [None]
  - Pain in extremity [None]
  - Rash erythematous [None]
  - Injection site erythema [None]

NARRATIVE: CASE EVENT DATE: 20191001
